FAERS Safety Report 10227690 (Version 3)
Quarter: 2014Q3

REPORT INFORMATION
  Report Type: Spontaneous
  Country: US (occurrence: None)
  Receive Date: 20140606
  Receipt Date: 20140722
  Transmission Date: 20150326
  Serious: Yes (Hospitalization)
  Sender: FDA-Public Use
  Company Number: UNT-2014-001412

PATIENT
  Age: 44 Year
  Sex: Female
  Weight: 49.9 kg

DRUGS (3)
  1. ADCIRCA [Concomitant]
     Active Substance: TADALAFIL
  2. MACITENTAN (MACITENTAN) [Concomitant]
  3. REMODULIN [Suspect]
     Active Substance: TREPROSTINIL
     Indication: COR PULMONALE CHRONIC
     Route: 058
     Dates: start: 20111207

REACTIONS (3)
  - Blood iron decreased [None]
  - Blood count abnormal [None]
  - Epistaxis [None]

NARRATIVE: CASE EVENT DATE: 20140521
